FAERS Safety Report 8692366 (Version 3)
Quarter: 2013Q4

REPORT INFORMATION
  Report Type: Spontaneous
  Country: JP (occurrence: JP)
  Receive Date: 20120730
  Receipt Date: 20131008
  Transmission Date: 20140711
  Serious: Yes (Hospitalization)
  Sender: FDA-Public Use
  Company Number: JP-PFIZER INC-2012179411

PATIENT
  Age: 73 Year
  Sex: Male

DRUGS (3)
  1. SERTRALINE HCL [Suspect]
     Dosage: 50 MG
  2. MIRTAZAPINE [Suspect]
     Indication: INSOMNIA
     Dosage: 15 MG
  3. MIRTAZAPINE [Suspect]
     Indication: ANXIETY
     Dosage: 30 MG

REACTIONS (1)
  - Status epilepticus [Recovered/Resolved]
